FAERS Safety Report 8178810-7 (Version None)
Quarter: 2012Q1

REPORT INFORMATION
  Report Type: 
  Country: None (occurrence: None)
  Receive Date: 20120301
  Receipt Date: 20120217
  Transmission Date: 20120608
  Serious: Yes (Other)
  Sender: FDA-Public Use
  Company Number: US-MYLANLABS-2012S1003879

PATIENT
  Sex: Female

DRUGS (2)
  1. CARBAMAZEPINE [Suspect]
     Dosage: 200MG
     Route: 065
  2. LAMOTRIGINE [Suspect]
     Dosage: 100MG
     Route: 065

REACTIONS (2)
  - MENINGOMYELOCELE [None]
  - MATERNAL EXPOSURE DURING PREGNANCY [None]
